FAERS Safety Report 11419907 (Version 2)
Quarter: 2016Q1

REPORT INFORMATION
  Report Type: Spontaneous
  Country: JP (occurrence: JP)
  Receive Date: 20150826
  Receipt Date: 20160330
  Transmission Date: 20160525
  Serious: Yes (Other)
  Sender: FDA-Public Use
  Company Number: JP-JNJFOC-20150814640

PATIENT

DRUGS (1)
  1. INFLIXIMAB, RECOMBINANT [Suspect]
     Active Substance: INFLIXIMAB
     Indication: COLITIS ULCERATIVE
     Dosage: 100MG/UNIT VIALS??INDUCTION DOSE AT AT WEEKS 0, 2 AND 6.
     Route: 042

REACTIONS (3)
  - Colectomy [Unknown]
  - Drug ineffective [Unknown]
  - Colitis ulcerative [Unknown]
